FAERS Safety Report 6630951-9 (Version None)
Quarter: 2010Q1

REPORT INFORMATION
  Report Type: 
  Country: None (occurrence: None)
  Receive Date: 20100311
  Receipt Date: 20100301
  Transmission Date: 20100710
  Serious: No
  Sender: FDA-Public Use
  Company Number: US-BIOGENIDEC-2010BI006367

PATIENT
  Age: 27 Year
  Sex: Female

DRUGS (1)
  1. TYSABRI [Suspect]
     Indication: MULTIPLE SCLEROSIS
     Route: 042
     Dates: start: 20100204

REACTIONS (9)
  - ABDOMINAL PAIN LOWER [None]
  - DIARRHOEA [None]
  - EYE SWELLING [None]
  - FATIGUE [None]
  - PALLOR [None]
  - POLLAKIURIA [None]
  - URTICARIA [None]
  - VAGINAL DISCHARGE [None]
  - VULVOVAGINAL PRURITUS [None]
